FAERS Safety Report 7231469-5 (Version None)
Quarter: 2011Q1

REPORT INFORMATION
  Report Type: 
  Country: None (occurrence: None)
  Receive Date: 20110118
  Receipt Date: 20110113
  Transmission Date: 20110831
  Serious: Yes (Hospitalization, Other)
  Sender: FDA-Public Use
  Company Number: US-CEPHALON-2011000217

PATIENT
  Sex: Female
  Weight: 57 kg

DRUGS (21)
  1. SENEKOT S [Concomitant]
     Dates: start: 20100617
  2. TESSALON [Concomitant]
     Dates: start: 20101213
  3. ASPIRIN [Concomitant]
     Dates: start: 20080101
  4. BENDAMUSTINE HCL [Suspect]
     Indication: LYMPHOMA
     Route: 042
     Dates: start: 20100608, end: 20101118
  5. RITUXAN [Suspect]
     Indication: LYMPHOMA
     Route: 042
     Dates: start: 20100608, end: 20101118
  6. KLONOPIN [Concomitant]
     Dates: start: 20040101
  7. FOLIC ACID [Concomitant]
     Dates: start: 20100101
  8. ARANESP [Concomitant]
     Dates: start: 20090526
  9. RONDEC DM [Concomitant]
     Dates: start: 20101002
  10. LEXAPRO [Concomitant]
     Dates: start: 20030101
  11. PROTONIX [Concomitant]
     Dates: start: 20080101
  12. COMPAZINE [Concomitant]
     Dates: start: 20100608
  13. ALLEGRA [Concomitant]
     Dates: start: 20020415
  14. MAGNESIUM [Concomitant]
     Dates: start: 20080418
  15. WELLBUTRIN [Concomitant]
     Dates: start: 20101022
  16. CRESTOR [Concomitant]
     Dates: start: 20100215
  17. TOPROL-XL [Concomitant]
     Dates: start: 20080101
  18. CENTRUM SILVER [Concomitant]
     Dates: start: 19990101
  19. NORVASC [Concomitant]
     Dates: start: 20040101
  20. HYDROCHLOROTHIAZIDE [Concomitant]
     Dates: start: 20040101
  21. VITAMIN-MINERAL COMPOUND TAB [Concomitant]
     Dates: start: 20070101

REACTIONS (2)
  - PANCYTOPENIA [None]
  - PNEUMONITIS [None]
